FAERS Safety Report 10479605 (Version 2)
Quarter: 2014Q3

REPORT INFORMATION
  Report Type: Report from Study
  Country: US (occurrence: US)
  Receive Date: 20140927
  Receipt Date: 20140927
  Transmission Date: 20150326
  Serious: Yes (Other)
  Sender: FDA-Public Use
  Company Number: US-ALEXION PHARMACEUTICALS INC-A200800804

PATIENT
  Age: 55 Year
  Sex: Female

DRUGS (2)
  1. SOLIRIS [Suspect]
     Active Substance: ECULIZUMAB
     Indication: PAROXYSMAL NOCTURNAL HAEMOGLOBINURIA
     Dosage: UNK
     Route: 042
  2. DESFERAL [Concomitant]
     Active Substance: DEFEROXAMINE MESYLATE
     Indication: IRON OVERLOAD

REACTIONS (5)
  - Aspiration bone marrow [Unknown]
  - Transfusion [Unknown]
  - Intentional product misuse [Unknown]
  - Haemoglobin decreased [Unknown]
  - Iron overload [Unknown]

NARRATIVE: CASE EVENT DATE: 20080924
